FAERS Safety Report 4527730-5 (Version None)
Quarter: 2004Q3

REPORT INFORMATION
  Report Type: 
  Country: None (occurrence: None)
  Receive Date: 20040723
  Receipt Date: 20040723
  Transmission Date: 20050211
  Serious: Yes (Hospitalization)
  Sender: FDA-Public Use
  Company Number: None

PATIENT
  Age: 82 Year
  Sex: Male

DRUGS (2)
  1. VANCOMYCIN [Suspect]
     Indication: POSTOPERATIVE INFECTION
     Dosage: 1 GM Q24H  INTRAVENOUS
     Route: 042
     Dates: start: 20040717, end: 20040718
  2. ZOSYN [Concomitant]

REACTIONS (1)
  - ANAPHYLACTIC REACTION [None]
